FAERS Safety Report 13698829 (Version 1)
Quarter: 2017Q2

REPORT INFORMATION
  Report Type: Spontaneous
  Country: US (occurrence: US)
  Receive Date: 20170627
  Receipt Date: 20170627
  Transmission Date: 20170830
  Serious: Yes (Hospitalization)
  Sender: FDA-Public Use
  Company Number: None

PATIENT
  Age: 19 Year
  Sex: Female
  Weight: 60.3 kg

DRUGS (2)
  1. JUNEL BIRTH CONTROL [Concomitant]
  2. DULOXETINE. [Suspect]
     Active Substance: DULOXETINE
     Indication: ANXIETY
     Dosage: ?          OTHER STRENGTH:MG;QUANTITY:90 CAPSULE(S);?
     Route: 048
     Dates: start: 20160725, end: 20170318

REACTIONS (7)
  - Product quality issue [None]
  - Loss of personal independence in daily activities [None]
  - Loss of employment [None]
  - Paraesthesia [None]
  - Weight increased [None]
  - Suicidal ideation [None]
  - Withdrawal syndrome [None]

NARRATIVE: CASE EVENT DATE: 20170125
